FAERS Safety Report 6919043-9 (Version None)
Quarter: 2010Q3

REPORT INFORMATION
  Report Type: 
  Country: None (occurrence: None)
  Receive Date: 20100811
  Receipt Date: 20100728
  Transmission Date: 20110219
  Serious: Yes (Other)
  Sender: FDA-Public Use
  Company Number: PHHY2010BR49860

PATIENT
  Age: 49 Year
  Sex: Male

DRUGS (1)
  1. VOLTAREN [Suspect]
     Dosage: UNK
     Route: 030

REACTIONS (3)
  - MUSCLE OPERATION [None]
  - SKIN GRAFT [None]
  - SKIN NECROSIS [None]
